FAERS Safety Report 14587608 (Version 2)
Quarter: 2018Q1

REPORT INFORMATION
  Report Type: Spontaneous
  Country: US (occurrence: US)
  Receive Date: 20180301
  Receipt Date: 20180316
  Transmission Date: 20180509
  Serious: Yes (Hospitalization)
  Sender: FDA-Public Use
  Company Number: US-FRESENIUS MEDICAL CARE RENAL THERAPIES GROUP-FMC-1802-000395

PATIENT
  Age: 31 Year
  Sex: Male
  Weight: 103.3 kg

DRUGS (10)
  1. FERROUS SULFATE. [Concomitant]
     Active Substance: FERROUS SULFATE
  2. FUROSEMIDE. [Concomitant]
     Active Substance: FUROSEMIDE
  3. DELFLEX WITH DEXTROSE 2.5% LOW MAGNESIUM LOW CALCIUM [Suspect]
     Active Substance: CALCIUM CHLORIDE\DEXTROSE\MAGNESIUM CHLORIDE\SODIUM CHLORIDE\SODIUM LACTATE
     Indication: END STAGE RENAL DISEASE
     Route: 033
     Dates: start: 20170904
  4. ATORVASTATIN [Concomitant]
     Active Substance: ATORVASTATIN
  5. HYDRALAZINE [Concomitant]
     Active Substance: HYDRALAZINE HYDROCHLORIDE
  6. RENVELA [Concomitant]
     Active Substance: SEVELAMER CARBONATE
  7. EPOETIN ALFA [Concomitant]
     Active Substance: ERYTHROPOIETIN
  8. DELFLEX WITH DEXTROSE 1.5% LOW MAGNESIUM LOW CALCIUM [Suspect]
     Active Substance: CALCIUM CHLORIDE\DEXTROSE\MAGNESIUM CHLORIDE\SODIUM CHLORIDE\SODIUM LACTATE
     Indication: END STAGE RENAL DISEASE
     Route: 033
     Dates: start: 20170904
  9. CARVEDILOL. [Concomitant]
     Active Substance: CARVEDILOL
  10. LOSARTAN. [Concomitant]
     Active Substance: LOSARTAN

REACTIONS (4)
  - Dyspnoea [Recovered/Resolved]
  - Peritonitis bacterial [Recovered/Resolved]
  - Vomiting [Recovered/Resolved]
  - Bloody peritoneal effluent [Recovered/Resolved]

NARRATIVE: CASE EVENT DATE: 20180218
